FAERS Safety Report 6923306-0 (Version None)
Quarter: 2010Q3

REPORT INFORMATION
  Report Type: 
  Country: None (occurrence: None)
  Receive Date: 20100813
  Receipt Date: 20100805
  Transmission Date: 20110219
  Serious: Yes (Hospitalization)
  Sender: FDA-Public Use
  Company Number: JP-BRISTOL-MYERS SQUIBB COMPANY-15196264

PATIENT
  Age: 46 Year
  Sex: Male
  Weight: 59 kg

DRUGS (4)
  1. SAXAGLIPTIN [Suspect]
     Indication: TYPE 2 DIABETES MELLITUS
     Dosage: FORMULATION:TABLET;INTERRUPTED 15JUL2010(160D).RESTART ON 16JUL2010 + STOPPED ON 03AUG2010(19D)
     Route: 048
     Dates: start: 20100205, end: 20100803
  2. NABOAL [Concomitant]
     Dosage: 1% GEL
  3. EPALRESTAT [Concomitant]
     Dosage: TABLET
     Dates: start: 20100707
  4. KETOPROFEN [Concomitant]
     Dosage: MOHRUS TAPE
     Dates: start: 20100712

REACTIONS (1)
  - CHEST PAIN [None]
